FAERS Safety Report 4972238-6 (Version None)
Quarter: 2006Q2

REPORT INFORMATION
  Report Type: 
  Country: None (occurrence: None)
  Receive Date: 20060413
  Receipt Date: 20060410
  Transmission Date: 20061013
  Serious: Yes (Other)
  Sender: FDA-Public Use
  Company Number: DE-GLAXOSMITHKLINE-D0049374A

PATIENT
  Sex: Female

DRUGS (1)
  1. IMIGRAN [Suspect]
     Route: 065

REACTIONS (1)
  - DRUG DEPENDENCE [None]
